FAERS Safety Report 23414283 (Version 2)
Quarter: 2024Q1

REPORT INFORMATION
  Report Type: Spontaneous
  Country: JP (occurrence: JP)
  Receive Date: 20240118
  Receipt Date: 20240222
  Transmission Date: 20240409
  Serious: Yes (Other)
  Sender: FDA-Public Use
  Company Number: JP-MSD-2401JPN001343J

PATIENT
  Age: 44 Year
  Sex: Female

DRUGS (2)
  1. KEYTRUDA [Suspect]
     Active Substance: PEMBROLIZUMAB
     Indication: Neoplasm malignant
     Dosage: 200 MILLIGRAM, Q3W
     Route: 041
  2. CARBOPLATIN [Suspect]
     Active Substance: CARBOPLATIN
     Indication: Neoplasm malignant
     Dosage: UNK
     Route: 065

REACTIONS (4)
  - Immune-mediated pancreatitis [Unknown]
  - Neuropathy peripheral [Unknown]
  - Drug hypersensitivity [Unknown]
  - Neutrophil count decreased [Unknown]
